FAERS Safety Report 7377273-9 (Version None)
Quarter: 2011Q1

REPORT INFORMATION
  Report Type: 
  Country: None (occurrence: None)
  Receive Date: 20110328
  Receipt Date: 20110314
  Transmission Date: 20110831
  Serious: Yes (Other)
  Sender: FDA-Public Use
  Company Number: NZ-JNJFOC-20110307129

PATIENT
  Age: 61 Year
  Sex: Female

DRUGS (4)
  1. HYPNOVEL [Suspect]
     Indication: PRODUCT USED FOR UNKNOWN INDICATION
     Route: 065
  2. TOPAMAX [Suspect]
     Indication: MIGRAINE PROPHYLAXIS
     Route: 048
  3. FERROUS SULFATE TAB [Concomitant]
     Route: 065
  4. ZINC [Concomitant]
     Route: 065

REACTIONS (1)
  - BRADYPHRENIA [None]
